FAERS Safety Report 14733960 (Version 2)
Quarter: 2018Q2

REPORT INFORMATION
  Report Type: Spontaneous
  Country: DK (occurrence: DK)
  Receive Date: 20180409
  Receipt Date: 20180418
  Transmission Date: 20180711
  Serious: Yes (Other)
  Sender: FDA-Public Use
  Company Number: DK-NOVOPROD-593577

PATIENT
  Age: 56 Year
  Sex: Male

DRUGS (2)
  1. NORDITROPIN [Suspect]
     Active Substance: SOMATROPIN
     Indication: WEIGHT CONTROL
     Dosage: 3 U, QD
     Route: 058
  2. METFORMIN [Concomitant]
     Active Substance: METFORMIN HYDROCHLORIDE
     Indication: TYPE 2 DIABETES MELLITUS
     Dosage: UNK
     Route: 065

REACTIONS (6)
  - Varicose vein [Unknown]
  - Epididymal enlargement [Not Recovered/Not Resolved]
  - Product use in unapproved indication [Unknown]
  - Testicular pain [Recovered/Resolved]
  - Skin hypertrophy [Not Recovered/Not Resolved]
  - Testicular mass [Not Recovered/Not Resolved]

NARRATIVE: CASE EVENT DATE: 2018
